FAERS Safety Report 25517163 (Version 2)
Quarter: 2025Q3

REPORT INFORMATION
  Report Type: Spontaneous
  Country: JP (occurrence: JP)
  Receive Date: 20250704
  Receipt Date: 20250714
  Transmission Date: 20251021
  Serious: Yes (Death)
  Sender: ROCHE
  Company Number: JP-CHUGAI-2025020984

PATIENT
  Age: 74 Year
  Sex: Male

DRUGS (2)
  1. GAZYVA [Suspect]
     Active Substance: OBINUTUZUMAB
     Indication: Chronic lymphocytic leukaemia
     Route: 042
     Dates: start: 20250520
  2. ACALABRUTINIB [Concomitant]
     Active Substance: ACALABRUTINIB
     Route: 048
     Dates: start: 20250422

REACTIONS (1)
  - Lung disorder [Fatal]
